FAERS Safety Report 6042731-6 (Version None)
Quarter: 2009Q1

REPORT INFORMATION
  Report Type: 
  Country: None (occurrence: None)
  Receive Date: 20090119
  Receipt Date: 20081124
  Transmission Date: 20090719
  Serious: Yes (Other)
  Sender: FDA-Public Use
  Company Number: PT-JNJFOC-20081106385

PATIENT
  Age: 73 Year
  Sex: Male

DRUGS (8)
  1. RISPERIDONE [Suspect]
     Indication: INSOMNIA
     Route: 065
  2. RISPERIDONE [Suspect]
     Indication: COGNITIVE DISORDER
     Route: 065
  3. RISPERIDONE [Suspect]
     Indication: DELIRIUM
     Route: 065
  4. RISPERIDONE [Suspect]
     Indication: HALLUCINATION, VISUAL
     Route: 065
  5. LORAZEPAM [Concomitant]
     Indication: INSOMNIA
     Route: 065
  6. LORAZEPAM [Concomitant]
     Indication: COGNITIVE DISORDER
     Route: 065
  7. LORAZEPAM [Concomitant]
     Indication: DELIRIUM
     Route: 065
  8. LORAZEPAM [Concomitant]
     Indication: HALLUCINATION, VISUAL
     Dosage: AT NIGHT
     Route: 065

REACTIONS (9)
  - AGITATION [None]
  - AKINESIA [None]
  - CONDITION AGGRAVATED [None]
  - CONFUSIONAL STATE [None]
  - COORDINATION ABNORMAL [None]
  - FALL [None]
  - HALLUCINATION [None]
  - MUSCULOSKELETAL STIFFNESS [None]
  - SEDATION [None]
